FAERS Safety Report 5616588-9 (Version None)
Quarter: 2008Q1

REPORT INFORMATION
  Report Type: 
  Country: None (occurrence: None)
  Receive Date: 20080207
  Receipt Date: 20070821
  Transmission Date: 20080703
  Serious: No
  Sender: FDA-Public Use
  Company Number: A0673505A

PATIENT
  Age: 25 Year
  Sex: Male

DRUGS (2)
  1. PAXIL CR [Suspect]
     Dosage: 25MG PER DAY
     Route: 048
     Dates: start: 20070807, end: 20070819
  2. PAXIL [Suspect]
     Dosage: 30MG PER DAY
     Route: 048
     Dates: start: 20070820

REACTIONS (3)
  - DRUG EFFECT DECREASED [None]
  - EJACULATION DISORDER [None]
  - LIBIDO DECREASED [None]
